FAERS Safety Report 5602632-1 (Version None)
Quarter: 2008Q1

REPORT INFORMATION
  Report Type: 
  Country: None (occurrence: None)
  Receive Date: 20080125
  Receipt Date: 20080114
  Transmission Date: 20080703
  Serious: Yes (Other)
  Sender: FDA-Public Use
  Company Number: GB-ROCHE-541342

PATIENT
  Age: 48 Year
  Sex: Female
  Weight: 108 kg

DRUGS (2)
  1. ORLISTAT [Suspect]
     Indication: OBESITY
     Route: 048
     Dates: start: 20071116, end: 20071201
  2. ANTIBIOTIC NOS [Concomitant]

REACTIONS (1)
  - CELLULITIS [None]
